FAERS Safety Report 14791007 (Version 1)
Quarter: 2018Q2

REPORT INFORMATION
  Report Type: Spontaneous
  Country: GR (occurrence: GR)
  Receive Date: 20180423
  Receipt Date: 20180423
  Transmission Date: 20180711
  Serious: Yes (Death, Hospitalization, Other)
  Sender: FDA-Public Use
  Company Number: GR-MYLANLABS-2018M1025448

PATIENT
  Age: 70 Year
  Sex: Female

DRUGS (2)
  1. CICLOSPORIN [Suspect]
     Active Substance: CYCLOSPORINE
     Indication: PRODUCT USED FOR UNKNOWN INDICATION
     Dosage: UNK
     Route: 065
  2. METHOTREXATE. [Suspect]
     Active Substance: METHOTREXATE
     Indication: PRODUCT USED FOR UNKNOWN INDICATION
     Route: 065

REACTIONS (12)
  - Angioimmunoblastic T-cell lymphoma [Unknown]
  - Pruritus [Unknown]
  - Pancreatitis acute [Fatal]
  - Necrosis [Unknown]
  - Drug resistance [Unknown]
  - Dermatitis exfoliative generalised [Unknown]
  - Dermatopathic lymphadenopathy [Unknown]
  - Blood lactate dehydrogenase increased [Unknown]
  - Anaemia [Unknown]
  - Skin ulcer [Unknown]
  - Skin mass [Unknown]
  - Malaise [Unknown]
